FAERS Safety Report 5493122-8 (Version None)
Quarter: 2007Q4

REPORT INFORMATION
  Report Type: 
  Country: None (occurrence: None)
  Receive Date: 20071022
  Receipt Date: 20071022
  Transmission Date: 20080405
  Serious: Yes (Hospitalization)
  Sender: FDA-Public Use
  Company Number: None

PATIENT
  Sex: Female
  Weight: 97.7 kg

DRUGS (4)
  1. FLUOROURACIL [Suspect]
     Dosage: 9160 MG
     Dates: end: 20070724
  2. BEVACIZUMAB (RHUMAB VEGF) [Suspect]
     Dosage: 973 MG
     Dates: end: 20070724
  3. LEUCOVORIN CALCIUM [Suspect]
     Dosage: 1636 MG
     Dates: end: 20070724
  4. ELOXATIN [Suspect]
     Dosage: 266 MG
     Dates: end: 20070724

REACTIONS (8)
  - ASTHENIA [None]
  - CONVULSION [None]
  - DEPRESSED LEVEL OF CONSCIOUSNESS [None]
  - ENCEPHALOPATHY [None]
  - HEADACHE [None]
  - PYREXIA [None]
  - TREMOR [None]
  - URINARY INCONTINENCE [None]
